FAERS Safety Report 5006088-1 (Version None)
Quarter: 2006Q2

REPORT INFORMATION
  Report Type: 
  Country: None (occurrence: None)
  Receive Date: 20060518
  Receipt Date: 20060510
  Transmission Date: 20061013
  Serious: Yes (Hospitalization)
  Sender: FDA-Public Use
  Company Number: US-MERCK-0605USA01850

PATIENT
  Sex: Female

DRUGS (1)
  1. INVANZ [Suspect]
     Indication: INFECTION
     Route: 042

REACTIONS (1)
  - DRUG RESISTANCE [None]
